FAERS Safety Report 5452957-8 (Version None)
Quarter: 2007Q3

REPORT INFORMATION
  Report Type: 
  Country: None (occurrence: None)
  Receive Date: 20070914
  Receipt Date: 20070903
  Transmission Date: 20080115
  Serious: Yes (Hospitalization)
  Sender: FDA-Public Use
  Company Number: GB-PFIZER INC-2007074561

PATIENT
  Age: 55 Year
  Sex: Female

DRUGS (9)
  1. GABAPENTIN [Suspect]
     Indication: MUSCULOSKELETAL PAIN
  2. ALFENTANIL [Suspect]
     Indication: GENERAL ANAESTHESIA
  3. DEXAMETHASONE 0.5MG TAB [Suspect]
     Indication: GENERAL ANAESTHESIA
  4. FENTANYL [Suspect]
     Indication: GENERAL ANAESTHESIA
  5. ISOFLURANE [Suspect]
     Indication: GENERAL ANAESTHESIA
     Dosage: TEXT:1.4% DAILY EVERY DAY TDD:1.4%
  6. SEVOFLURANE [Suspect]
     Indication: GENERAL ANAESTHESIA
     Dosage: TEXT:2.2%-FREQ:DAILY
  7. PROPOFOL [Concomitant]
     Indication: GENERAL ANAESTHESIA
  8. CODEINE SUL TAB [Concomitant]
     Indication: MUSCULOSKELETAL PAIN
  9. PARACETAMOL [Concomitant]
     Indication: MUSCULOSKELETAL PAIN

REACTIONS (3)
  - DRUG INTERACTION [None]
  - DYSTONIA [None]
  - MYOTONIA [None]
